FAERS Safety Report 17034792 (Version 1)
Quarter: 2019Q4

REPORT INFORMATION
  Report Type: Spontaneous
  Country: GB (occurrence: GB)
  Receive Date: 20191115
  Receipt Date: 20191115
  Transmission Date: 20200122
  Serious: Yes (Hospitalization)
  Sender: FDA-Public Use
  Company Number: GB-009507513-1911GBR004431

PATIENT
  Age: 89 Year
  Sex: Female

DRUGS (9)
  1. GAVISCON ADVANCE (POTASSIUM BICARBONATE (+) SODIUM ALGINATE) [Concomitant]
  2. CHOLECALCIFEROL [Concomitant]
     Active Substance: CHOLECALCIFEROL
  3. SOLIFENACIN SUCCINATE. [Concomitant]
     Active Substance: SOLIFENACIN SUCCINATE
  4. PRUCALOPRIDE [Concomitant]
     Active Substance: PRUCALOPRIDE
  5. OMEPRAZOLE. [Concomitant]
     Active Substance: OMEPRAZOLE
  6. ALENDRONATE SODIUM. [Suspect]
     Active Substance: ALENDRONATE SODIUM
     Indication: OSTEOPOROSIS
     Dosage: 70 MILLIGRAM, EVERY WEEK (QW)
     Route: 048
  7. RAMIPRIL. [Concomitant]
     Active Substance: RAMIPRIL
  8. ACETAMINOPHEN. [Concomitant]
     Active Substance: ACETAMINOPHEN
  9. POLYETHYLENE GLYCOL [Concomitant]
     Active Substance: POLYETHYLENE GLYCOLS

REACTIONS (3)
  - Haematemesis [Recovering/Resolving]
  - Abdominal pain [Recovering/Resolving]
  - Upper gastrointestinal haemorrhage [Recovering/Resolving]
